FAERS Safety Report 7996005-4 (Version None)
Quarter: 2011Q4

REPORT INFORMATION
  Report Type: 
  Country: None (occurrence: None)
  Receive Date: 20111220
  Receipt Date: 20111207
  Transmission Date: 20120403
  Serious: Yes (Hospitalization, Other)
  Sender: FDA-Public Use
  Company Number: PHHY2011FR107412

PATIENT
  Sex: Female

DRUGS (8)
  1. NEBIVOLOL HCL [Concomitant]
     Dosage: 0.25 DF OF, (05 MG),QD
  2. PLAVIX [Concomitant]
     Dosage: 1 DF, BID
  3. ATORVASTATIN CALCIUM [Concomitant]
     Dosage: 1 DF, OF (20 MG), QD
  4. CORVASAL [Concomitant]
     Dosage: 1 DF OF (02 MG) TID
  5. VALSARTAN  AND HYDROCHLOROTHIAZIDE [Suspect]
     Dosage: 1 DF, QD
     Dates: end: 20111103
  6. ACETAMINOPHEN [Concomitant]
     Dosage: 2 DF OF (500) MG, TID
  7. FERROUS SULFATE TAB [Concomitant]
     Dosage: 1 DF, QD
  8. ALLOPURINOL [Concomitant]
     Dosage: 1 DF OF (200 MG), QD

REACTIONS (4)
  - HYPONATRAEMIA [None]
  - ANURIA [None]
  - SKIN DISORDER [None]
  - ASTHENIA [None]
